FAERS Safety Report 18454586 (Version 1)
Quarter: 2020Q4

REPORT INFORMATION
  Report Type: Spontaneous
  Country: US (occurrence: US)
  Receive Date: 20201102
  Receipt Date: 20201102
  Transmission Date: 20210114
  Serious: Yes (Other)
  Sender: FDA-Public Use
  Company Number: US-PURDUE-USA-2020-0155191

PATIENT
  Sex: Male

DRUGS (7)
  1. ZOFRAN [Suspect]
     Active Substance: ONDANSETRON HYDROCHLORIDE
     Indication: PRODUCT USED FOR UNKNOWN INDICATION
     Dosage: UNK
     Route: 048
  2. OXYCODONE HCL TABLETS (RHODES 91-490) [Suspect]
     Active Substance: OXYCODONE HYDROCHLORIDE
     Indication: PAIN
     Dosage: UNK
     Route: 048
  3. OPIUM                              /00040001/ [Suspect]
     Active Substance: OPIUM
     Indication: PAIN
     Dosage: UNK
     Route: 065
  4. OXYCODONE HYDROCHLORIDE (SIMILAR TO NDA 22-272) [Suspect]
     Active Substance: OXYCODONE HYDROCHLORIDE
     Indication: PAIN
     Dosage: UNK
     Route: 048
  5. OXYCONTIN [Suspect]
     Active Substance: OXYCODONE HYDROCHLORIDE
     Indication: PRODUCT USED FOR UNKNOWN INDICATION
     Dosage: UNK
     Route: 048
  6. GABAPENTIN. [Suspect]
     Active Substance: GABAPENTIN
     Indication: PAIN
     Dosage: UNK
     Route: 048
  7. KEFLEX [Suspect]
     Active Substance: CEPHALEXIN
     Indication: PRODUCT USED FOR UNKNOWN INDICATION
     Dosage: UNKNOWN
     Route: 048

REACTIONS (11)
  - Learning disability [Unknown]
  - Syncope [Unknown]
  - Cardiac disorder [Unknown]
  - Depression [Unknown]
  - Overdose [Unknown]
  - Seizure [Unknown]
  - Anger [Unknown]
  - Blood loss anaemia [Unknown]
  - Bradykinesia [Unknown]
  - Haemorrhage [Unknown]
  - Hyperhidrosis [Unknown]
